FAERS Safety Report 7179960-4 (Version None)
Quarter: 2010Q4

REPORT INFORMATION
  Report Type: 
  Country: None (occurrence: None)
  Receive Date: 20101221
  Receipt Date: 20101215
  Transmission Date: 20110411
  Serious: Yes (Disabling, Other)
  Sender: FDA-Public Use
  Company Number: CA-MERCK-1012USA02511

PATIENT
  Age: 27 Year
  Sex: Male
  Weight: 82 kg

DRUGS (1)
  1. PROSCAR [Suspect]
     Route: 048

REACTIONS (3)
  - GENITAL PAIN [None]
  - GROIN PAIN [None]
  - SEXUAL DYSFUNCTION [None]
